FAERS Safety Report 9758404 (Version 1)
Quarter: 2013Q4

REPORT INFORMATION
  Report Type: Spontaneous
  Country: US (occurrence: US)
  Receive Date: 20131216
  Receipt Date: 20131216
  Transmission Date: 20140711
  Serious: No
  Sender: FDA-Public Use
  Company Number: US-TEVA-442271USA

PATIENT
  Sex: Female

DRUGS (1)
  1. LEVETIRACETAM [Suspect]
     Dosage: 2 TABS AT BEDTIME AND 1 TAB IN THE MORNING
     Dates: start: 201306

REACTIONS (2)
  - Malabsorption [Unknown]
  - Product physical issue [Unknown]
